FAERS Safety Report 16133721 (Version 3)
Quarter: 2019Q2

REPORT INFORMATION
  Report Type: Report from Study
  Country: FR (occurrence: FR)
  Receive Date: 20190329
  Receipt Date: 20190524
  Transmission Date: 20190711
  Serious: Yes (Congenital Anomaly)
  Sender: FDA-Public Use
  Company Number: FR-ROCHE-2286228

PATIENT

DRUGS (4)
  1. MYCOPHENOLATE MOFETIL. [Suspect]
     Active Substance: MYCOPHENOLATE MOFETIL
     Indication: PRODUCT USED FOR UNKNOWN INDICATION
     Route: 064
  2. AMOROLFINE [Suspect]
     Active Substance: AMOROLFINE
     Indication: PRODUCT USED FOR UNKNOWN INDICATION
     Route: 064
  3. ALENDRONATE [Suspect]
     Active Substance: ALENDRONATE SODIUM
     Indication: PRODUCT USED FOR UNKNOWN INDICATION
     Route: 064
  4. AZATHIOPRINE. [Suspect]
     Active Substance: AZATHIOPRINE
     Indication: PRODUCT USED FOR UNKNOWN INDICATION
     Route: 064

REACTIONS (13)
  - Pulmonary malformation [Unknown]
  - Oesophageal atresia [Unknown]
  - Cystic eyeball, congenital [Unknown]
  - Dysmorphism [Unknown]
  - Congenital cardiovascular anomaly [Unknown]
  - Coloboma [Unknown]
  - Epiphyses premature fusion [Unknown]
  - Foetal exposure during pregnancy [Unknown]
  - Congenital aortic anomaly [Unknown]
  - Teratogenicity [Unknown]
  - Congenital hand malformation [Unknown]
  - Multiple congenital abnormalities [Unknown]
  - Microphthalmos [Unknown]
